FAERS Safety Report 4489408-6 (Version None)
Quarter: 2004Q4

REPORT INFORMATION
  Report Type: 
  Country: None (occurrence: None)
  Receive Date: 20041025
  Receipt Date: 20041013
  Transmission Date: 20050328
  Serious: Yes (Hospitalization, Other)
  Sender: FDA-Public Use
  Company Number: 2004077401

PATIENT
  Age: 75 Year
  Sex: Female
  Weight: 68.0396 kg

DRUGS (7)
  1. LISTERINE ANTISEPTIC MOUTHWASH (EUCALYPTOL, MENTHOL, METHYL SALICYLATE [Suspect]
     Indication: DENTAL CARE
     Dosage: A CAPFUL 1 OR 2X DAILY, ORAL
     Route: 048
     Dates: start: 19410101
  2. ATENOLOL [Concomitant]
  3. CLOPIDOGREL BISULFATE [Concomitant]
  4. SIMVASTATIN [Concomitant]
  5. AMLODIPINE BESYLATE [Concomitant]
  6. TOLTERODINE TARTRATE [Concomitant]
  7. SERTRALINE HCL [Concomitant]

REACTIONS (3)
  - CEREBROVASCULAR ACCIDENT [None]
  - GLOSSODYNIA [None]
  - TRANSIENT ISCHAEMIC ATTACK [None]
